FAERS Safety Report 9490372 (Version 2)
Quarter: 2013Q3

REPORT INFORMATION
  Report Type: Spontaneous
  Country: GR (occurrence: GR)
  Receive Date: 20130830
  Receipt Date: 20130830
  Transmission Date: 20140515
  Serious: Yes (Hospitalization)
  Sender: FDA-Public Use
  Company Number: GR-009507513-1308GRC000508

PATIENT
  Age: 94 Year
  Sex: Female

DRUGS (2)
  1. REMERON [Suspect]
     Dosage: 30 MG, QD
     Route: 048
     Dates: start: 201305, end: 20130729
  2. ZYPREXA [Concomitant]
     Dosage: 1/4 TABLET EVERY 2 DAYS
     Route: 048
     Dates: end: 2013

REACTIONS (11)
  - Fall [Unknown]
  - Extradural haematoma [Unknown]
  - Mouth haemorrhage [Unknown]
  - Hypotonia [Unknown]
  - Hypoglycaemia [Recovering/Resolving]
  - Stupor [Recovering/Resolving]
  - Decreased appetite [Unknown]
  - Dehydration [Recovered/Resolved]
  - Hyponatraemia [Recovered/Resolved]
  - Constipation [Recovered/Resolved]
  - Dysphagia [Unknown]
